FAERS Safety Report 11648160 (Version 3)
Quarter: 2016Q2

REPORT INFORMATION
  Report Type: Spontaneous
  Country: US (occurrence: US)
  Receive Date: 20151021
  Receipt Date: 20160526
  Transmission Date: 20160815
  Serious: Yes (Other)
  Sender: FDA-Public Use
  Company Number: US-JNJFOC-20151008999

PATIENT
  Sex: Female
  Weight: 76.2 kg

DRUGS (1)
  1. INVOKANA [Suspect]
     Active Substance: CANAGLIFLOZIN
     Indication: DIABETES MELLITUS
     Route: 048
     Dates: start: 2015, end: 201509

REACTIONS (5)
  - Adverse event [Unknown]
  - Ketoacidosis [Not Recovered/Not Resolved]
  - Renal disorder [Unknown]
  - Hypersensitivity [Unknown]
  - Blindness [Unknown]

NARRATIVE: CASE EVENT DATE: 2015
